FAERS Safety Report 8984972 (Version 1)
Quarter: 2012Q4

REPORT INFORMATION
  Report Type: 
  Country: US (occurrence: US)
  Receive Date: 20121226
  Receipt Date: 20121226
  Transmission Date: 20130627
  Serious: Yes (Hospitalization)
  Sender: FDA-Public Use
  Company Number: PHEH2012US025131

PATIENT
  Sex: Male

DRUGS (1)
  1. EXJADE [Suspect]
     Indication: IRON OVERLOAD
     Dosage: 500 mg, TID
     Route: 048

REACTIONS (5)
  - Blood disorder [Unknown]
  - White blood cell count decreased [Unknown]
  - Fluid retention [Unknown]
  - Dyspnoea [Unknown]
  - Platelet count decreased [Unknown]
